FAERS Safety Report 8123438-8 (Version None)
Quarter: 2012Q1

REPORT INFORMATION
  Report Type: 
  Country: None (occurrence: None)
  Receive Date: 20120208
  Receipt Date: 20120127
  Transmission Date: 20120608
  Serious: Yes (Hospitalization)
  Sender: FDA-Public Use
  Company Number: PHHY2012PH006795

PATIENT
  Sex: Female
  Weight: 62.5 kg

DRUGS (3)
  1. ALISKIREN / HCTZ [Suspect]
     Indication: HYPERTENSION
     Dosage: 150/12.5 MG
     Dates: start: 20111025
  2. SIMVASTATIN [Concomitant]
     Indication: DYSLIPIDAEMIA
     Dosage: 20 MG
     Dates: start: 20111027
  3. GLIMEPIRIDE [Concomitant]
     Indication: DIABETES MELLITUS
     Dosage: 1 MG
     Dates: start: 20111027

REACTIONS (1)
  - MYOCARDIAL INFARCTION [None]
